FAERS Safety Report 19739616 (Version 2)
Quarter: 2021Q3

REPORT INFORMATION
  Report Type: Report from Study
  Country: US (occurrence: US)
  Receive Date: 20210824
  Receipt Date: 20210915
  Transmission Date: 20211014
  Serious: Yes (Other)
  Sender: FDA-Public Use
  Company Number: US-EXELIXIS-CABO-21043424

PATIENT
  Age: 89 Year
  Sex: Male

DRUGS (5)
  1. LUPRON [Concomitant]
     Active Substance: LEUPROLIDE ACETATE
  2. CABOMETYX [Suspect]
     Active Substance: CABOZANTINIB S-MALATE
     Indication: PROSTATE CANCER
     Dosage: 40 MG, QD
     Dates: start: 20210720
  3. ELIQUIS [Concomitant]
     Active Substance: APIXABAN
  4. CABOMETYX [Suspect]
     Active Substance: CABOZANTINIB S-MALATE
     Dosage: 40 MG, QOD
     Dates: start: 20210904
  5. KEYTRUDA [Concomitant]
     Active Substance: PEMBROLIZUMAB

REACTIONS (21)
  - Macular degeneration [Recovering/Resolving]
  - Pollakiuria [Not Recovered/Not Resolved]
  - Fatigue [Recovering/Resolving]
  - Glossodynia [Unknown]
  - Off label use [Unknown]
  - Atrial fibrillation [Recovering/Resolving]
  - Frequent bowel movements [Recovered/Resolved]
  - Balance disorder [Recovering/Resolving]
  - Pruritus [Recovering/Resolving]
  - Blood pressure increased [Recovering/Resolving]
  - Constipation [Recovered/Resolved]
  - Decreased appetite [Unknown]
  - Dyspnoea [Recovering/Resolving]
  - Inappropriate schedule of product administration [Unknown]
  - Feeling cold [Recovered/Resolved]
  - Hypoaesthesia [Not Recovered/Not Resolved]
  - Myalgia [Recovering/Resolving]
  - Bone pain [Recovering/Resolving]
  - Rash macular [Recovering/Resolving]
  - Stomatitis [Recovering/Resolving]
  - Weight decreased [Not Recovered/Not Resolved]

NARRATIVE: CASE EVENT DATE: 20210904
